FAERS Safety Report 4876594-9 (Version None)
Quarter: 2006Q1

REPORT INFORMATION
  Report Type: 
  Country: None (occurrence: None)
  Receive Date: 20060110
  Receipt Date: 20060105
  Transmission Date: 20060701
  Serious: Yes (Other)
  Sender: FDA-Public Use
  Company Number: 200610002EU

PATIENT
  Age: 28 Year
  Sex: Male

DRUGS (3)
  1. NICODERM [Suspect]
     Dosage: 7MG PER DAY
     Route: 062
  2. UNKNOWN [Concomitant]
  3. PAROXETINE HYDROCHLORIDE [Concomitant]
     Indication: DEPRESSION

REACTIONS (1)
  - DEPENDENCE [None]
